FAERS Safety Report 13696825 (Version 2)
Quarter: 2017Q3

REPORT INFORMATION
  Report Type: Spontaneous
  Country: DE (occurrence: DE)
  Receive Date: 20170628
  Receipt Date: 20170713
  Transmission Date: 20171127
  Serious: Yes (Hospitalization, Other)
  Sender: FDA-Public Use
  Company Number: DE-TORRENT-00006637

PATIENT
  Age: 37 Year
  Sex: Female

DRUGS (1)
  1. VENLAFAXIN HEUMANN [Suspect]
     Active Substance: VENLAFAXINE HYDROCHLORIDE

REACTIONS (7)
  - Extrasystoles [Recovered/Resolved]
  - Palpitations [Recovered/Resolved]
  - Heart rate increased [Recovered/Resolved]
  - Diarrhoea [Unknown]
  - Hypokalaemia [Unknown]
  - Nosophobia [Unknown]
  - Cortisol increased [Unknown]

NARRATIVE: CASE EVENT DATE: 201705
